FAERS Safety Report 6240151-2 (Version None)
Quarter: 2009Q2

REPORT INFORMATION
  Report Type: 
  Country: None (occurrence: None)
  Receive Date: 20090623
  Receipt Date: 20090617
  Transmission Date: 20091009
  Serious: Yes (Death, Other)
  Sender: FDA-Public Use
  Company Number: HQWYE905124MAY05

PATIENT
  Sex: Female

DRUGS (4)
  1. PREMARIN [Suspect]
     Indication: OSTEOPOROSIS
  2. PROVERA [Suspect]
  3. MEDROXYPROGESTERONE [Suspect]
  4. CYCRIN [Suspect]

REACTIONS (1)
  - BREAST CANCER [None]
